FAERS Safety Report 17889580 (Version 1)
Quarter: 2020Q2

REPORT INFORMATION
  Report Type: Spontaneous
  Country: US (occurrence: US)
  Receive Date: 20200612
  Receipt Date: 20200612
  Transmission Date: 20200714
  Serious: Yes (Other)
  Sender: FDA-Public Use
  Company Number: None

PATIENT
  Age: 68 Year
  Sex: Male
  Weight: 82 kg

DRUGS (5)
  1. SELINEXOR VS. PLACEBO [Concomitant]
     Dates: start: 20200530, end: 20200608
  2. REMDESIVIR. [Suspect]
     Active Substance: REMDESIVIR
     Indication: COVID-19
     Dates: start: 20200531, end: 20200609
  3. FUROSEMIDE. [Concomitant]
     Active Substance: FUROSEMIDE
     Dates: start: 20200602, end: 20200606
  4. NOREPINEPHRINE. [Concomitant]
     Active Substance: NOREPINEPHRINE
     Dates: start: 20200531, end: 20200609
  5. ACETAMINOPHEN. [Concomitant]
     Active Substance: ACETAMINOPHEN
     Dates: start: 20200530, end: 20200609

REACTIONS (2)
  - Ischaemic hepatitis [None]
  - Acute kidney injury [None]

NARRATIVE: CASE EVENT DATE: 20200608
